FAERS Safety Report 9302441 (Version 1)
Quarter: 2013Q2

REPORT INFORMATION
  Report Type: Spontaneous
  Country: DE (occurrence: None)
  Receive Date: 20130517
  Receipt Date: 20130517
  Transmission Date: 20140414
  Serious: Yes (Hospitalization)
  Sender: FDA-Public Use
  Company Number: DE-1198172

PATIENT
  Age: 90 Year
  Sex: Female

DRUGS (6)
  1. AZOPT [Suspect]
     Route: 047
     Dates: start: 2012
  2. GABAPENTIN [Concomitant]
  3. ASA [Concomitant]
  4. ALLOPURINOL [Concomitant]
  5. AMITRIPTYLINE [Concomitant]
  6. BELOC [Concomitant]

REACTIONS (6)
  - Depression [None]
  - Memory impairment [None]
  - Pain [None]
  - Asthenia [None]
  - Somnolence [None]
  - Pyrexia [None]
